FAERS Safety Report 15883039 (Version 1)
Quarter: 2019Q1

REPORT INFORMATION
  Report Type: Spontaneous
  Country: US (occurrence: US)
  Receive Date: 20190129
  Receipt Date: 20190129
  Transmission Date: 20190417
  Serious: Yes (Other)
  Sender: FDA-Public Use
  Company Number: US-SA-2019SA023059

PATIENT
  Sex: Female

DRUGS (5)
  1. NICOTINE. [Suspect]
     Active Substance: NICOTINE
     Dosage: LOZENGE
  2. NICOTINE. [Suspect]
     Active Substance: NICOTINE
     Dosage: MEDICATED CHEWING-GUM
  3. LAMOTRIGINE. [Suspect]
     Active Substance: LAMOTRIGINE
     Indication: ANHEDONIA
     Dosage: 100 MG, BID
  4. NICOTINE. [Suspect]
     Active Substance: NICOTINE
     Indication: PRODUCT USED FOR UNKNOWN INDICATION
     Dosage: UNK, UNK (TRANSDERMAL PATCH)
     Route: 062
  5. BUPROPION. [Suspect]
     Active Substance: BUPROPION
     Indication: PRODUCT USED FOR UNKNOWN INDICATION
     Dosage: UNK, UNK

REACTIONS (7)
  - Drug hypersensitivity [Unknown]
  - Joint injury [Unknown]
  - Adverse event [Unknown]
  - Drug intolerance [Unknown]
  - Rash [Unknown]
  - Serotonin syndrome [Unknown]
  - Drug ineffective [Unknown]
